FAERS Safety Report 16657579 (Version 1)
Quarter: 2019Q3

REPORT INFORMATION
  Report Type: Spontaneous
  Country: US (occurrence: US)
  Receive Date: 20190801
  Receipt Date: 20190801
  Transmission Date: 20191004
  Serious: No
  Sender: FDA-Public Use
  Company Number: US-SA-2019SA208189

PATIENT
  Sex: Male
  Weight: 113.39 kg

DRUGS (12)
  1. FIRAZYR [Concomitant]
     Active Substance: ICATIBANT ACETATE
  2. FOLIC ACID. [Concomitant]
     Active Substance: FOLIC ACID
  3. DANAZOL. [Concomitant]
     Active Substance: DANAZOL
  4. ACETAMINOPHEN. [Concomitant]
     Active Substance: ACETAMINOPHEN
  5. VITAMIN D3 [Concomitant]
     Active Substance: CHOLECALCIFEROL
  6. VALSARTAN HYDROCHLOROTHIAZIDE KRKA [Concomitant]
     Active Substance: HYDROCHLOROTHIAZIDE\VALSARTAN
  7. MELOXICAM. [Concomitant]
     Active Substance: MELOXICAM
  8. METHOTREXATE. [Concomitant]
     Active Substance: METHOTREXATE
  9. KEVZARA [Suspect]
     Active Substance: SARILUMAB
     Indication: RHEUMATOID ARTHRITIS
     Dosage: 200 MG, QOW
     Route: 058
  10. AMLODIPINE BESYLATE. [Concomitant]
     Active Substance: AMLODIPINE BESYLATE
  11. ATORVASTATIN CALCIUM. [Concomitant]
     Active Substance: ATORVASTATIN CALCIUM
  12. PRILOSEC [Concomitant]
     Active Substance: OMEPRAZOLE MAGNESIUM

REACTIONS (1)
  - Drug ineffective [Unknown]
